FAERS Safety Report 4311767-5 (Version None)
Quarter: 2004Q1

REPORT INFORMATION
  Report Type: 
  Country: None (occurrence: None)
  Receive Date: 20040304
  Receipt Date: 20040304
  Transmission Date: 20041129
  Serious: Yes (Disabling)
  Sender: FDA-Public Use
  Company Number: None

PATIENT
  Sex: Female
  Weight: 70.3075 kg

DRUGS (1)
  1. NARDIL [Suspect]
     Indication: MAJOR DEPRESSION
     Dosage: 6 PILLS PER DAY OTHER
     Route: 050
     Dates: start: 19871110, end: 20020303

REACTIONS (6)
  - AMNESIA [None]
  - DRUG INEFFECTIVE [None]
  - FATIGUE [None]
  - HEADACHE [None]
  - PHARMACEUTICAL PRODUCT COMPLAINT [None]
  - VOMITING [None]
